FAERS Safety Report 9583322 (Version 1)
Quarter: 2013Q4

REPORT INFORMATION
  Report Type: Spontaneous
  Country: US (occurrence: US)
  Receive Date: 20131002
  Receipt Date: 20131002
  Transmission Date: 20140711
  Serious: No
  Sender: FDA-Public Use
  Company Number: US-AMGEN-USASP2013046906

PATIENT
  Age: 57 Year
  Sex: Female
  Weight: 61 kg

DRUGS (10)
  1. ENBREL [Suspect]
     Indication: PRODUCT USED FOR UNKNOWN INDICATION
     Dosage: 50 MG, QWK
     Route: 058
     Dates: start: 20030701
  2. ATENOLOL [Concomitant]
     Dosage: 25 MG, UNK
     Route: 048
  3. HYDROCHLOROTH [Concomitant]
     Dosage: 12.5 MG, UNK
     Route: 048
  4. NORVASC [Concomitant]
     Dosage: 2.5 MG, UNK
     Route: 048
  5. MULTIVITAMINS, PLAIN [Concomitant]
     Dosage: UNK
     Route: 048
  6. OSTEO BI-FLEX [Concomitant]
     Dosage: UNK
  7. LOXIN                              /00328002/ [Concomitant]
     Dosage: UNK
     Route: 048
  8. CO Q 10                            /00517201/ [Concomitant]
     Dosage: 100 MG, UNK
     Route: 048
  9. CITRACAL PLUS [Concomitant]
     Dosage: UNK
     Route: 048
  10. RESVERATROL [Concomitant]
     Dosage: 50 MG, UNK
     Route: 048

REACTIONS (1)
  - Contusion [Unknown]
